FAERS Safety Report 6867576-6 (Version None)
Quarter: 2010Q3

REPORT INFORMATION
  Report Type: 
  Country: None (occurrence: None)
  Receive Date: 20100722
  Receipt Date: 20100421
  Transmission Date: 20110219
  Serious: No
  Sender: FDA-Public Use
  Company Number: US-BAUSCH-2010BL001069

PATIENT
  Age: 67 Year
  Sex: Female

DRUGS (2)
  1. TOBRAMYCIN AND DEXAMETHASONE [Suspect]
     Indication: PRODUCT USED FOR UNKNOWN INDICATION
     Route: 047
     Dates: start: 20100218, end: 20100218
  2. DOXYCYCLINE [Concomitant]
     Indication: PRODUCT USED FOR UNKNOWN INDICATION
     Route: 048

REACTIONS (2)
  - EYE IRRITATION [None]
  - OCULAR HYPERAEMIA [None]
